FAERS Safety Report 22621815 (Version 1)
Quarter: 2023Q2

REPORT INFORMATION
  Report Type: Spontaneous
  Country: US (occurrence: US)
  Receive Date: 20230620
  Receipt Date: 20230620
  Transmission Date: 20230722
  Serious: No
  Sender: FDA-Public Use
  Company Number: US-GILEAD-2023-0632594

PATIENT
  Age: 63 Year
  Sex: Female

DRUGS (9)
  1. BIKTARVY [Suspect]
     Active Substance: BICTEGRAVIR SODIUM\EMTRICITABINE\TENOFOVIR ALAFENAMIDE FUMARATE
     Indication: HIV infection
     Dosage: UNK
     Route: 065
  2. COBICISTAT [Concomitant]
     Active Substance: COBICISTAT
  3. DARUNAVIR [Concomitant]
     Active Substance: DARUNAVIR
  4. DOLUTEGRAVIR [Concomitant]
     Active Substance: DOLUTEGRAVIR
  5. EMTRICITABINE\TENOFOVIR [Concomitant]
     Active Substance: EMTRICITABINE\TENOFOVIR
  6. FOSTEMSAVIR [Concomitant]
     Active Substance: FOSTEMSAVIR
  7. IBALIZUMAB [Concomitant]
     Active Substance: IBALIZUMAB
  8. RILPIVIRINE [Concomitant]
     Active Substance: RILPIVIRINE
  9. LENACAPAVIR [Concomitant]
     Active Substance: LENACAPAVIR

REACTIONS (1)
  - Drug resistance [Unknown]
